FAERS Safety Report 23454979 (Version 1)
Quarter: 2024Q1

REPORT INFORMATION
  Report Type: Spontaneous
  Country: NL (occurrence: NL)
  Receive Date: 20240130
  Receipt Date: 20240130
  Transmission Date: 20240410
  Serious: Yes (Death, Hospitalization)
  Sender: FDA-Public Use
  Company Number: NL-JNJFOC-20240175384

PATIENT
  Age: 75 Year
  Sex: Female

DRUGS (1)
  1. UPTRAVI [Suspect]
     Active Substance: SELEXIPAG
     Indication: Pulmonary hypertension
     Dosage: START DATE UNKNOWN, FAMILY THINKS IT WILL START AROUND 2021
     Route: 065
     Dates: end: 20240112

REACTIONS (1)
  - Pneumonia [Fatal]
